FAERS Safety Report 6047568-X (Version None)
Quarter: 2009Q1

REPORT INFORMATION
  Report Type: 
  Country: None (occurrence: None)
  Receive Date: 20090123
  Receipt Date: 20090116
  Transmission Date: 20090719
  Serious: Yes (Death)
  Sender: FDA-Public Use
  Company Number: US-RANBAXY-2009RR-20615

PATIENT
  Age: 34 Year
  Sex: Male

DRUGS (11)
  1. ATENOLOL [Suspect]
  2. PHENYTOIN [Suspect]
  3. FENOFIBRATE TABLETS [Suspect]
  4. TRAZODONE HCL [Suspect]
  5. OXYCODONE HCL [Suspect]
  6. GEMFIBROZIL [Suspect]
  7. MIRTAZAPINE [Suspect]
  8. HALOPERIDOL [Suspect]
  9. COLCHICINE [Suspect]
  10. INDOMETHACIN [Suspect]
  11. LOSARTAN POTASSIUM [Suspect]

REACTIONS (1)
  - DRUG ABUSE [None]
